FAERS Safety Report 16648535 (Version 2)
Quarter: 2019Q3

REPORT INFORMATION
  Report Type: Report from Study
  Country: US (occurrence: US)
  Receive Date: 20190730
  Receipt Date: 20190807
  Transmission Date: 20191004
  Serious: Yes (Hospitalization, Other)
  Sender: FDA-Public Use
  Company Number: US-PFIZER INC-261467

PATIENT
  Age: 44 Year
  Sex: Female

DRUGS (1)
  1. EPINEPHRINE. [Suspect]
     Active Substance: EPINEPHRINE
     Indication: KELOID SCAR
     Dosage: UNK
     Route: 042

REACTIONS (1)
  - Stress cardiomyopathy [Recovering/Resolving]
